FAERS Safety Report 9812851 (Version 4)
Quarter: 2014Q2

REPORT INFORMATION
  Report Type: Spontaneous
  Country: US (occurrence: US)
  Receive Date: 20140113
  Receipt Date: 20140411
  Transmission Date: 20141212
  Serious: Yes (Death)
  Sender: FDA-Public Use
  Company Number: US-PFIZER INC-2014005761

PATIENT
  Age: 67 Year
  Sex: Male

DRUGS (1)
  1. XALKORI [Suspect]
     Indication: LUNG CANCER METASTATIC
     Dosage: 200 MG, 2X/DAY
     Route: 048
     Dates: start: 201306

REACTIONS (5)
  - Disease progression [Fatal]
  - Lung cancer metastatic [Fatal]
  - Deep vein thrombosis [Unknown]
  - Pain in extremity [Unknown]
  - Weight decreased [Unknown]
